FAERS Safety Report 7981657-5 (Version None)
Quarter: 2011Q4

REPORT INFORMATION
  Report Type: 
  Country: None (occurrence: None)
  Receive Date: 20111215
  Receipt Date: 20111207
  Transmission Date: 20120403
  Serious: Yes (Hospitalization, Other)
  Sender: FDA-Public Use
  Company Number: IN-BAYER-2011-117029

PATIENT
  Sex: Female

DRUGS (2)
  1. MIRENA [Suspect]
     Indication: MENORRHAGIA
     Dosage: 20 MCG/24HR, CONT
     Route: 015
     Dates: start: 20100101
  2. LYNORAL [Suspect]
     Dosage: UNK
     Dates: start: 20100101

REACTIONS (2)
  - DEEP VEIN THROMBOSIS [None]
  - VAGINAL HAEMORRHAGE [None]
